FAERS Safety Report 18145957 (Version 1)
Quarter: 2020Q3

REPORT INFORMATION
  Report Type: Spontaneous
  Country: US (occurrence: US)
  Receive Date: 20200813
  Receipt Date: 20200813
  Transmission Date: 20201103
  Serious: Yes (Other)
  Sender: FDA-Public Use
  Company Number: US-ABBVIE-20K-163-3519115-00

PATIENT
  Sex: Male

DRUGS (1)
  1. CREON [Suspect]
     Active Substance: PANCRELIPASE AMYLASE\PANCRELIPASE LIPASE\PANCRELIPASE PROTEASE
     Indication: PANCREATIC FAILURE
     Route: 048

REACTIONS (9)
  - Gastrooesophageal reflux disease [Unknown]
  - Anger [Unknown]
  - Memory impairment [Unknown]
  - Inappropriate schedule of product administration [Unknown]
  - Pancreatic disorder [Recovering/Resolving]
  - Discomfort [Unknown]
  - Dyspepsia [Unknown]
  - Surgery [Unknown]
  - Abdominal pain [Unknown]
